FAERS Safety Report 6736343-6 (Version None)
Quarter: 2010Q2

REPORT INFORMATION
  Report Type: 
  Country: None (occurrence: None)
  Receive Date: 20100521
  Receipt Date: 20100513
  Transmission Date: 20101027
  Serious: Yes (Other)
  Sender: FDA-Public Use
  Company Number: US-JNJFOC-20100508023

PATIENT
  Sex: Female

DRUGS (1)
  1. NUCYNTA [Suspect]
     Indication: SPINAL OSTEOARTHRITIS
     Route: 048

REACTIONS (3)
  - DIZZINESS [None]
  - HYPOAESTHESIA [None]
  - MENTAL STATUS CHANGES [None]
